FAERS Safety Report 9469278 (Version 1)
Quarter: 2013Q3

REPORT INFORMATION
  Report Type: Report from Study
  Country: US (occurrence: US)
  Receive Date: 20130821
  Receipt Date: 20130821
  Transmission Date: 20140515
  Serious: Yes (Hospitalization)
  Sender: FDA-Public Use
  Company Number: US-HALOZYME THERAPEUTICS, INC.-2013-US-HYL-00302

PATIENT
  Age: 36 Year
  Sex: Male
  Weight: 76.19 kg

DRUGS (2)
  1. HYLENEX RECOMBINANT [Suspect]
     Indication: ADJUVANT THERAPY
     Dosage: 150 USP U/ML, Q 3 DAYS; LAST DOSE PRIOR TO EVENT 04AUG13
     Route: 058
     Dates: start: 20130610
  2. NOVOLOG [Concomitant]
     Indication: TYPE 1 DIABETES MELLITUS
     Dosage: 25 U/ML, UNK
     Route: 058
     Dates: start: 2004

REACTIONS (2)
  - Hypoglycaemia [Recovered/Resolved]
  - Convulsion [Recovered/Resolved]
